FAERS Safety Report 9108226 (Version 1)
Quarter: 2013Q1

REPORT INFORMATION
  Report Type: Spontaneous
  Country: US (occurrence: US)
  Receive Date: 20130222
  Receipt Date: 20130222
  Transmission Date: 20140127
  Serious: Yes (Other)
  Sender: FDA-Public Use
  Company Number: US-ABBOTT-13P-163-1053868-00

PATIENT
  Age: 27 Year
  Sex: Male

DRUGS (2)
  1. ADALIMUMAB [Suspect]
     Indication: IMMUNOSUPPRESSION
  2. 6-MERCAPTOPURINE [Suspect]
     Indication: IMMUNOSUPPRESSION

REACTIONS (1)
  - Hepatosplenic T-cell lymphoma [Recovered/Resolved]
